FAERS Safety Report 23757472 (Version 1)
Quarter: 2024Q2

REPORT INFORMATION
  Report Type: Spontaneous
  Country: US (occurrence: None)
  Receive Date: 20240417
  Receipt Date: 20240417
  Transmission Date: 20240716
  Serious: No
  Sender: FDA-Public Use
  Company Number: None

PATIENT
  Age: 65 Year
  Sex: Female

DRUGS (1)
  1. OJJAARA [Suspect]
     Active Substance: MOMELOTINIB DIHYDROCHLORIDE MONOHYDRATE
     Indication: Myelofibrosis
     Dosage: FREQUENCY : DAILY;?
     Route: 048
     Dates: start: 20240307

REACTIONS (10)
  - Diarrhoea [None]
  - Urinary tract infection [None]
  - Blood uric acid increased [None]
  - Blood creatinine increased [None]
  - Pain [None]
  - Arthralgia [None]
  - Bone pain [None]
  - Asthenia [None]
  - Dehydration [None]
  - Decreased appetite [None]

NARRATIVE: CASE EVENT DATE: 20240416
